FAERS Safety Report 5606497-3 (Version None)
Quarter: 2008Q1

REPORT INFORMATION
  Report Type: 
  Country: None (occurrence: None)
  Receive Date: 20080129
  Receipt Date: 20080116
  Transmission Date: 20080703
  Serious: Yes (Hospitalization)
  Sender: FDA-Public Use
  Company Number: A0688348A

PATIENT
  Age: 63 Year
  Sex: Male

DRUGS (14)
  1. COREG [Suspect]
     Route: 065
     Dates: start: 20060901
  2. CELLCEPT [Suspect]
     Indication: PROPHYLAXIS AGAINST TRANSPLANT REJECTION
     Dosage: 500MG PER DAY
     Route: 065
     Dates: start: 20060227
  3. RAPAMUNE [Suspect]
     Indication: PROPHYLAXIS AGAINST TRANSPLANT REJECTION
     Route: 065
     Dates: start: 20060227, end: 20070907
  4. GLIPIZIDE [Concomitant]
  5. LISINOPRIL [Concomitant]
     Dates: start: 20060901
  6. OMEPRAZOLE [Concomitant]
  7. SIMVASTATIN [Concomitant]
  8. LANTUS [Concomitant]
  9. NOVOLOG [Concomitant]
  10. ASPIRIN [Concomitant]
  11. FOLIC ACID [Concomitant]
  12. MULTI-VITAMIN [Concomitant]
  13. CALCIUM GLUCONATE [Concomitant]
  14. DIGESTIVE ENZYMES [Concomitant]

REACTIONS (8)
  - ASTHENIA [None]
  - BLOOD PRESSURE DECREASED [None]
  - CEREBROVASCULAR ACCIDENT [None]
  - DEHYDRATION [None]
  - DIABETES MELLITUS INADEQUATE CONTROL [None]
  - HYPERSOMNIA [None]
  - INTRACARDIAC THROMBUS [None]
  - VISION BLURRED [None]
